FAERS Safety Report 8777321 (Version 1)
Quarter: 2012Q4

REPORT INFORMATION
  Report Type: 
  Country: US (occurrence: US)
  Receive Date: 20120911
  Receipt Date: 20120911
  Transmission Date: 20130627
  Serious: No
  Sender: FDA-Public Use
  Company Number: US-PFIZER INC-2012223235

PATIENT
  Age: 44 Year
  Sex: Female
  Weight: 104 kg

DRUGS (4)
  1. NEURONTIN [Suspect]
     Indication: BACK PAIN
     Dosage: 600 mg, UNK
     Route: 048
     Dates: start: 2011
  2. NEURONTIN [Suspect]
     Indication: PAIN IN EXTREMITY
     Dosage: UNK
     Route: 048
  3. ASPIRIN/CAFFEINE/SALICYLAMIDE [Suspect]
     Indication: PAIN
     Dosage: UNK, 1x/day
     Dates: start: 2011
  4. ASPIRIN/CAFFEINE/SALICYLAMIDE [Suspect]
     Dosage: UNK

REACTIONS (7)
  - Paraesthesia oral [Unknown]
  - Paraesthesia oral [Unknown]
  - Glossodynia [Unknown]
  - Lip pain [Unknown]
  - Feeling abnormal [Unknown]
  - Sunburn [Unknown]
  - Urticaria [Unknown]
